FAERS Safety Report 6392337-4 (Version None)
Quarter: 2009Q4

REPORT INFORMATION
  Report Type: 
  Country: None (occurrence: None)
  Receive Date: 20091007
  Receipt Date: 20090924
  Transmission Date: 20100525
  Serious: Yes (Other)
  Sender: FDA-Public Use
  Company Number: PHHY2009IT41101

PATIENT
  Sex: Female

DRUGS (3)
  1. ZOMETA [Suspect]
     Indication: METASTASES TO BONE
     Dosage: 4 MG
     Route: 042
     Dates: start: 20020731, end: 20080207
  2. HERCEPTIN [Concomitant]
     Dosage: 300 MG
  3. VINORELBINE [Concomitant]
     Dosage: 4 MG
     Route: 042

REACTIONS (4)
  - BONE LESION [None]
  - GINGIVAL ULCERATION [None]
  - OSTEONECROSIS [None]
  - TOOTH ABSCESS [None]
